FAERS Safety Report 13500138 (Version 1)
Quarter: 2017Q2

REPORT INFORMATION
  Report Type: Spontaneous
  Country: US (occurrence: US)
  Receive Date: 20170501
  Receipt Date: 20170501
  Transmission Date: 20170830
  Serious: Yes (Other)
  Sender: FDA-Public Use
  Company Number: US-SA-2017SA078531

PATIENT
  Sex: Female

DRUGS (2)
  1. PRALUENT [Suspect]
     Active Substance: ALIROCUMAB
     Route: 058
     Dates: start: 201701
  2. ALIROCUMAB PREFILLED PEN [Concomitant]
     Active Substance: ALIROCUMAB
     Dates: start: 201701

REACTIONS (3)
  - Squamous cell carcinoma [Unknown]
  - Blood pressure increased [Unknown]
  - Blood glucose increased [Unknown]
